FAERS Safety Report 7123690-1 (Version None)
Quarter: 2010Q4

REPORT INFORMATION
  Report Type: 
  Country: None (occurrence: None)
  Receive Date: 20101125
  Receipt Date: 20101111
  Transmission Date: 20110411
  Serious: Yes (Other)
  Sender: FDA-Public Use
  Company Number: PHHY2010US73258

PATIENT
  Sex: Female

DRUGS (5)
  1. RECLAST [Suspect]
     Dosage: 5 MG
     Route: 042
     Dates: start: 20100903
  2. ZOCOR [Concomitant]
  3. MOBIC [Concomitant]
  4. CLARITIN-D [Concomitant]
  5. VITAMIN TAB [Concomitant]

REACTIONS (1)
  - TOOTH FRACTURE [None]
